FAERS Safety Report 16398285 (Version 1)
Quarter: 2019Q2

REPORT INFORMATION
  Report Type: Spontaneous
  Country: US (occurrence: US)
  Receive Date: 20190606
  Receipt Date: 20190606
  Transmission Date: 20190711
  Serious: No
  Sender: FDA-Public Use
  Company Number: US-PERRIGO-18US009828

PATIENT
  Age: 62 Year
  Sex: Female
  Weight: 81.63 kg

DRUGS (4)
  1. PERMETHRIN. [Suspect]
     Active Substance: PERMETHRIN
     Indication: LICE INFESTATION
     Dosage: 1/2 TUBE (APPROXIMATELY 30 GRAMS), SINGLE
     Route: 061
     Dates: start: 20180712, end: 20180712
  2. PERMETHRIN. [Suspect]
     Active Substance: PERMETHRIN
     Dosage: 1/2 TUBE (APPROXIMATELY 30 GRAMS), SINGLE
     Route: 061
     Dates: start: 20180806, end: 20180806
  3. PERMETHRIN. [Suspect]
     Active Substance: PERMETHRIN
     Dosage: 1/2 TUBE (APPROXIMATELY 30 GRAMS), SINGLE
     Route: 061
     Dates: start: 20180917, end: 20180917
  4. OTHER ANTITHROMBOTIC AGENTS [Concomitant]
     Indication: THROMBOSIS
     Dosage: UNK
     Route: 048

REACTIONS (1)
  - Drug ineffective for unapproved indication [Unknown]

NARRATIVE: CASE EVENT DATE: 20180712
